FAERS Safety Report 24728496 (Version 2)
Quarter: 2025Q3

REPORT INFORMATION
  Report Type: Report from Study
  Country: US (occurrence: US)
  Receive Date: 20241212
  Receipt Date: 20250809
  Transmission Date: 20251021
  Serious: Yes (Other)
  Sender: ALEXION PHARMACEUTICALS
  Company Number: US-AstraZeneca-CH-00762342A

PATIENT
  Sex: Male

DRUGS (2)
  1. ULTOMIRIS [Suspect]
     Active Substance: RAVULIZUMAB-CWVZ
     Indication: Atypical haemolytic uraemic syndrome
  2. WARFARIN [Suspect]
     Active Substance: WARFARIN
     Route: 065

REACTIONS (8)
  - Spinal stenosis [Unknown]
  - Exostosis [Unknown]
  - Osteoporosis [Unknown]
  - Arthropathy [Unknown]
  - Haemorrhagic disorder [Unknown]
  - Bone pain [Unknown]
  - Pain [Unknown]
  - Balance disorder [Unknown]
